FAERS Safety Report 22609869 (Version 1)
Quarter: 2023Q2

REPORT INFORMATION
  Report Type: Spontaneous
  Country: GB (occurrence: DE)
  Receive Date: 20230616
  Receipt Date: 20230616
  Transmission Date: 20230721
  Serious: Yes (Life-Threatening, Other)
  Sender: FDA-Public Use
  Company Number: DE-ROCHE-313090

PATIENT
  Age: 86 Year
  Sex: Female

DRUGS (45)
  1. NOREPINEPHRINE [Suspect]
     Active Substance: NOREPINEPHRINE
     Indication: Product used for unknown indication
     Dosage: UNK
     Route: 042
     Dates: start: 20000913, end: 20000913
  2. ASPIRIN [Suspect]
     Active Substance: ASPIRIN
     Indication: Coagulopathy
     Dosage: 100 MILLIGRAM, 1 DOSE, 100 MG, QD
     Route: 048
     Dates: start: 20000828, end: 20000831
  3. ASPIRIN [Suspect]
     Active Substance: ASPIRIN
     Dosage: 100 MILLIGRAM, 1 DOSE, 100 MG, QD
     Route: 048
     Dates: start: 20000914, end: 20000917
  4. ASPIRIN [Suspect]
     Active Substance: ASPIRIN
     Indication: Coagulopathy
     Dosage: 100 MILLIGRAM, 1 DOSE, 100 MG, QD
     Route: 048
     Dates: start: 20000914, end: 20000917
  5. CLONIDINE [Suspect]
     Active Substance: CLONIDINE
     Indication: Hypertension
     Dosage: UNK
     Route: 042
     Dates: start: 20000913, end: 20000913
  6. CLONIDINE [Suspect]
     Active Substance: CLONIDINE
     Indication: Coronary artery disease
  7. PREDNISOLONE [Suspect]
     Active Substance: PREDNISOLONE
     Indication: Dermatitis bullous
     Dosage: 60 MILLIGRAM, 1 DOSE
     Route: 048
  8. PREDNISOLONE [Suspect]
     Active Substance: PREDNISOLONE
     Indication: Pemphigoid
     Dosage: UNK
     Route: 048
     Dates: start: 20000820, end: 20000917
  9. PREDNISOLONE [Suspect]
     Active Substance: PREDNISOLONE
     Dosage: 40 MG, QD
     Route: 048
  10. PREDNISOLONE [Suspect]
     Active Substance: PREDNISOLONE
     Dosage: 50 UNK
     Route: 048
  11. PREDNISOLONE [Suspect]
     Active Substance: PREDNISOLONE
     Dosage: 80 MG, QD
     Route: 048
  12. DIAZEPAM [Suspect]
     Active Substance: DIAZEPAM
     Indication: Sedation
     Dosage: UNK
     Route: 042
     Dates: start: 20000913, end: 20000913
  13. FENTANYL [Suspect]
     Active Substance: FENTANYL
     Indication: Pain
     Dosage: 1 DOSAGE FORM
     Route: 062
     Dates: start: 20000820, end: 20000916
  14. FENTANYL [Suspect]
     Active Substance: FENTANYL
     Dosage: 50 MCG, MICROGRAMS PER INHALATION, 72 - EVERY HOUR
     Route: 062
  15. FENTANYL [Suspect]
     Active Substance: FENTANYL
     Dosage: 125 MICROGRAMS PER INHALATION
     Route: 062
  16. FENTANYL [Suspect]
     Active Substance: FENTANYL
     Dosage: 150 MICROGRAMS PER INHALATION, 72 - EVERY HOUR
     Route: 062
  17. GLYBURIDE [Suspect]
     Active Substance: GLYBURIDE
     Indication: Diabetes mellitus
     Dosage: 3 DOSAGE FORM
     Route: 048
     Dates: start: 20000820, end: 20000917
  18. FRAGMIN [Suspect]
     Active Substance: DALTEPARIN SODIUM
     Indication: Thrombosis prophylaxis
     Dosage: UNK
     Route: 058
     Dates: start: 20000820, end: 20000917
  19. FRAGMIN [Suspect]
     Active Substance: DALTEPARIN SODIUM
     Indication: Coagulopathy
  20. INSULIN NOS [Suspect]
     Active Substance: INSULIN NOS
     Indication: Diabetes mellitus
     Dosage: UNK, SUBCUTANEOUS EXCEPT ON 13 SEP 2000 WHEN GIVEN INTRAVENOU
     Route: 042
     Dates: start: 20000913, end: 20000913
  21. INSULIN NOS [Suspect]
     Active Substance: INSULIN NOS
     Dosage: SUBCUTANEOUS EXCEPT ON 13 SEP 2000 WHEN GIVEN INTRAVENOUSLY.
     Route: 058
     Dates: start: 20000820, end: 20000917
  22. MOLSIDOMINE [Suspect]
     Active Substance: MOLSIDOMINE
     Indication: Coronary artery disease
     Dosage: 8 MILLIGRAM, 1 DOSE
     Route: 048
     Dates: start: 20000820, end: 20000914
  23. ISOSORBIDE MONONITRATE [Suspect]
     Active Substance: ISOSORBIDE MONONITRATE
     Indication: Angina pectoris
     Dosage: 1 DOSAGE FORM, 1 DOSE
     Route: 048
     Dates: start: 20000820, end: 20000917
  24. LORMETAZEPAM [Suspect]
     Active Substance: LORMETAZEPAM
     Indication: Sedation
     Dosage: 2 DF, 1 DOSE DAILY ()SUSPENSION AEROSOL
     Route: 048
     Dates: start: 20000913, end: 20000913
  25. DIPYRONE [Suspect]
     Active Substance: DIPYRONE
     Indication: Pain
     Dosage: 20 GTT, 1 DOSE DAILY
     Route: 048
     Dates: start: 20000820, end: 20000917
  26. OMEPRAZOLE MAGNESIUM [Suspect]
     Active Substance: OMEPRAZOLE MAGNESIUM
     Indication: Prophylaxis against gastrointestinal ulcer
     Dosage: 20 MG, QD
     Route: 048
     Dates: start: 20000820, end: 20000917
  27. ESTRIOL [Suspect]
     Active Substance: ESTRIOL
     Indication: Vulvovaginal disorder
     Dosage: 1 DOSAGE FORM, 1 DOSE
     Route: 067
     Dates: start: 20000820, end: 20000906
  28. PLAVIX [Suspect]
     Active Substance: CLOPIDOGREL BISULFATE
     Indication: Thrombosis prophylaxis
     Dosage: 1 DOSAGE FORM, 1 DOSE, 75 MG, 1 DOSE DAILY
     Route: 048
     Dates: start: 20000913, end: 20000917
  29. PLAVIX [Suspect]
     Active Substance: CLOPIDOGREL BISULFATE
     Indication: Coagulopathy
  30. CLEMASTINE FUMARATE [Suspect]
     Active Substance: CLEMASTINE FUMARATE
     Indication: Pemphigoid
     Dosage: 4 DOSAGE FORM
     Route: 048
     Dates: start: 20000820, end: 20000828
  31. CLEMASTINE FUMARATE [Suspect]
     Active Substance: CLEMASTINE FUMARATE
     Dosage: 2 DOSAGE FORM, 1 DOSE
     Route: 048
     Dates: start: 20000820, end: 20000828
  32. TORSEMIDE [Suspect]
     Active Substance: TORSEMIDE
     Indication: Cardiac failure
     Dosage: 5 MILLIGRAM, 1 DOSE,5 MG, 1 DOSE DAILY
     Route: 048
     Dates: start: 20000820, end: 20000917
  33. VIOXX [Suspect]
     Active Substance: ROFECOXIB
     Indication: Rheumatic disorder
     Dosage: 25 MILLIGRAM, 1 DOSE, 25 MG, 1 DOSE DAILY
     Route: 048
     Dates: start: 20000907, end: 20000917
  34. XYLOCAINE [Suspect]
     Active Substance: LIDOCAINE HYDROCHLORIDE
     Indication: Local anaesthesia
     Dosage: UNK
     Route: 058
     Dates: start: 20000913, end: 20000913
  35. OMEPRAZOLE [Concomitant]
     Active Substance: OMEPRAZOLE
     Indication: Prophylaxis against gastrointestinal ulcer
     Dosage: 20 MILLIGRAM, 1 DOSE
     Route: 048
     Dates: start: 20000820, end: 20000917
  36. CALCIUM [Concomitant]
     Active Substance: CALCIUM
     Indication: Osteoporosis
     Dosage: 1 DOSAGE FORM, 1 DOSE, 1 DF, 1 DOSE DAILY
     Route: 048
     Dates: start: 20000820, end: 20000917
  37. MOLSIDOMINE [Concomitant]
     Active Substance: MOLSIDOMINE
     Indication: Coronary artery disease
     Dosage: 1 DOSAGE FORM, 1 DOSE, 1 DF, 1 DOSE DAILY
     Route: 048
     Dates: start: 20000820, end: 20000914
  38. COTRIM [Concomitant]
     Active Substance: SULFAMETHOXAZOLE\TRIMETHOPRIM
     Indication: Urinary tract infection
     Dosage: 1 DOSAGE FORM, 1 DOSE
     Route: 048
     Dates: start: 20000916, end: 20000917
  39. DEXTROSE [Concomitant]
     Active Substance: DEXTROSE\DEXTROSE MONOHYDRATE
     Indication: Diabetes mellitus
     Dosage: UNK
     Route: 042
     Dates: start: 20000913, end: 20000913
  40. DEXTROSE [Concomitant]
     Active Substance: DEXTROSE\DEXTROSE MONOHYDRATE
     Indication: Cardiovascular disorder
  41. OMEPRAZOLE MAGNESIUM [Concomitant]
     Active Substance: OMEPRAZOLE MAGNESIUM
     Indication: Prophylaxis against gastrointestinal ulcer
     Dosage: 20 MILLIGRAM, 1 DOSE
     Route: 048
     Dates: start: 20000820, end: 20000917
  42. CALCIUM CHLORIDE [Concomitant]
     Active Substance: CALCIUM CHLORIDE
     Indication: Fluid retention
     Dosage: UNK
     Route: 042
     Dates: start: 20000913, end: 20000914
  43. CALCIUM CHLORIDE [Concomitant]
     Active Substance: CALCIUM CHLORIDE
     Indication: Electrolyte depletion
  44. POTASSIUM CHLORIDE [Concomitant]
     Active Substance: POTASSIUM CHLORIDE
     Indication: Electrolyte depletion
     Dosage: UNK
     Route: 042
     Dates: start: 20000913, end: 20000914
  45. POTASSIUM CHLORIDE [Concomitant]
     Active Substance: POTASSIUM CHLORIDE
     Indication: Fluid retention

REACTIONS (6)
  - Toxic epidermal necrolysis [Recovered/Resolved]
  - Conjunctivitis [Recovered/Resolved]
  - Mucosal erosion [Recovered/Resolved]
  - Mouth ulceration [Recovered/Resolved]
  - Erythema [Recovered/Resolved]
  - Blister [Recovered/Resolved]

NARRATIVE: CASE EVENT DATE: 20000916
